FAERS Safety Report 4551834-4 (Version None)
Quarter: 2005Q1

REPORT INFORMATION
  Report Type: 
  Country: None (occurrence: None)
  Receive Date: 20050111
  Receipt Date: 20041227
  Transmission Date: 20050727
  Serious: Yes (Hospitalization)
  Sender: FDA-Public Use
  Company Number: 2004AL002094

PATIENT
  Age: 45 Year
  Sex: Female

DRUGS (8)
  1. KADIAN [Suspect]
     Dosage: 70 MG; QD; PO
     Route: 048
     Dates: start: 20030117, end: 20030224
  2. TRIZIVIR [Suspect]
     Indication: HIV INFECTION
     Dosage: BID; PO
     Route: 048
     Dates: start: 20030110, end: 20030218
  3. POTASSIUM CHLORIDE [Suspect]
     Dosage: PO
     Route: 048
     Dates: start: 20030104, end: 20030227
  4. OMEPRAZOLE [Suspect]
     Dosage: 20 MG, QD, PO
     Route: 048
     Dates: start: 20021205, end: 20030224
  5. ZOLPIDEM TARTRATE [Suspect]
     Dosage: QD; PO
     Route: 048
     Dates: start: 20030104, end: 20030224
  6. MACROGOL 4000 [Suspect]
     Dosage: QD; PO
     Route: 048
     Dates: start: 20030103, end: 20030224
  7. CLONAZEPAM [Suspect]
     Dosage: PO
     Route: 048
     Dates: start: 20030214, end: 20030224
  8. INTERFERON ALFA-2B [Suspect]
     Indication: KAPOSI'S SARCOMA
     Dosage: SC
     Route: 058
     Dates: start: 20030214, end: 20030224

REACTIONS (13)
  - ANAEMIA [None]
  - ANTI-HBC ANTIBODY POSITIVE [None]
  - ANTI-HBS ANTIBODY POSITIVE [None]
  - COAGULATION FACTOR V LEVEL DECREASED [None]
  - COAGULATION FACTOR VII LEVEL DECREASED [None]
  - COAGULATION FACTOR X LEVEL DECREASED [None]
  - COAGULATION TIME PROLONGED [None]
  - DISSEMINATED INTRAVASCULAR COAGULATION [None]
  - FIBRINOLYSIS [None]
  - HEPATIC FAILURE [None]
  - HEPATIC STEATOSIS [None]
  - MEAN CELL VOLUME DECREASED [None]
  - PROTHROMBIN LEVEL DECREASED [None]
